FAERS Safety Report 17946899 (Version 1)
Quarter: 2020Q2

REPORT INFORMATION
  Report Type: Report from Study
  Country: US (occurrence: US)
  Receive Date: 20200626
  Receipt Date: 20200626
  Transmission Date: 20200714
  Serious: Yes (Hospitalization)
  Sender: FDA-Public Use
  Company Number: US-GILEAD-2020-0476450

PATIENT
  Sex: Male

DRUGS (1)
  1. AZTREONAM LYSINE [Suspect]
     Active Substance: AZTREONAM LYSINE
     Indication: CYSTIC FIBROSIS
     Dosage: INHALE 75 MG (1 VIAL) BY ALTERA NEBULIZER THREE TIMES DAILY ALTERNATED WITH TOBI EVERY OTHER MONTH
     Route: 055

REACTIONS (1)
  - Total lung capacity decreased [Unknown]
